FAERS Safety Report 17076169 (Version 1)
Quarter: 2019Q4

REPORT INFORMATION
  Report Type: Spontaneous
  Country: AR (occurrence: AR)
  Receive Date: 20191126
  Receipt Date: 20191126
  Transmission Date: 20200122
  Serious: Yes (Hospitalization)
  Sender: FDA-Public Use
  Company Number: AR-BIOMARINAP-AR-2019-126996

PATIENT

DRUGS (1)
  1. ALDURAZYME [Suspect]
     Active Substance: LARONIDASE
     Indication: MUCOPOLYSACCHARIDOSIS I
     Dosage: 60 INTERNATIONAL UNIT
     Route: 041
     Dates: start: 201105, end: 20191029

REACTIONS (1)
  - Disease progression [Recovering/Resolving]
